FAERS Safety Report 5317864-X (Version None)
Quarter: 2007Q2

REPORT INFORMATION
  Report Type: 
  Country: None (occurrence: None)
  Receive Date: 20070430
  Receipt Date: 20070423
  Transmission Date: 20071010
  Serious: Yes (Life-Threatening, Hospitalization)
  Sender: FDA-Public Use
  Company Number: 2007SP007661

PATIENT
  Age: 55 Year
  Sex: Male

DRUGS (6)
  1. TEMODAL [Suspect]
     Indication: BRAIN NEOPLASM MALIGNANT
     Dosage: 130 MG; QD; PO
     Route: 048
     Dates: start: 20070122, end: 20070226
  2. NEOSIDANTOINA (PHENYTOIN SODIUM) [Suspect]
     Indication: CONVULSION
     Dosage: 100 MG; BID; PO
     Route: 048
     Dates: start: 20061125, end: 20070303
  3. DEPAKENE [Suspect]
     Indication: CONVULSION
     Dosage: 500 MG; TID ; PO
     Route: 048
     Dates: start: 20061201
  4. OMEPRAZOLE [Concomitant]
  5. DEXAMETHASONE 0.5MG TAB [Concomitant]
  6. SEPTRA [Concomitant]

REACTIONS (1)
  - TOXIC EPIDERMAL NECROLYSIS [None]
